FAERS Safety Report 12602378 (Version 2)
Quarter: 2016Q3

REPORT INFORMATION
  Report Type: Spontaneous
  Country: US (occurrence: US)
  Receive Date: 20160728
  Receipt Date: 20160810
  Transmission Date: 20161109
  Serious: No
  Sender: FDA-Public Use
  Company Number: US-PFIZER INC-2016362793

PATIENT
  Age: 72 Year
  Sex: Female
  Weight: 93 kg

DRUGS (10)
  1. INDERAL LA [Concomitant]
     Active Substance: PROPRANOLOL HYDROCHLORIDE
     Indication: MIGRAINE
     Dosage: 160MG CAPSULE, 1 AT BEDTIME
     Dates: start: 1997
  2. NEURONTIN [Suspect]
     Active Substance: GABAPENTIN
     Indication: TRIGEMINAL NEURALGIA
     Dosage: AT A LOW DOSE
     Route: 048
     Dates: start: 20160621
  3. HYDROCODONE BITARTRATE AND ACETAMINOPHEN [Concomitant]
     Active Substance: ACETAMINOPHEN\HYDROCODONE BITARTRATE
     Indication: PAIN
     Dosage: [HYDROCODONE BITARTRATE 7.5 MG]/[ACETAMINOPHEN 325 MG] ONLY 1 ABOUT TWICE A MONTH
     Route: 048
     Dates: start: 1996
  4. VITAMIN B12 [Concomitant]
     Active Substance: CYANOCOBALAMIN
     Indication: SUPPLEMENTATION THERAPY
     Dosage: 1000 MG, DAILY
     Dates: start: 1998
  5. ASPIRIN. [Concomitant]
     Active Substance: ASPIRIN
     Indication: BLOOD DISORDER
     Dosage: 81 MG, DAILY
     Dates: start: 2006
  6. NEURONTIN [Suspect]
     Active Substance: GABAPENTIN
     Dosage: 600MG TABLETS, 2 IN THE MORNING, 1 IN THE AFTERNOON, AND 1 AT BEDTIME
     Route: 048
  7. CARBAMAZEPINE. [Concomitant]
     Active Substance: CARBAMAZEPINE
     Indication: SEIZURE
     Dosage: 200MG, TAKES 2 TABS IN THE MORNING, 1.5 IN THE AFTERNOON, AND 2 AT BEDTIME
  8. CARBAMAZEPINE. [Concomitant]
     Active Substance: CARBAMAZEPINE
     Indication: TRIGEMINAL NEURALGIA
     Dosage: 2 DF, 3X/DAY
  9. FOLIC ACID. [Concomitant]
     Active Substance: FOLIC ACID
     Indication: SUPPLEMENTATION THERAPY
     Dosage: 800 MG, DAILY
     Dates: start: 1998
  10. DOCUSATE [Concomitant]
     Active Substance: DOCUSATE
     Indication: CONSTIPATION
     Dosage: 100MG, 1 CAPSULE BY MOUTH TWICE PER DAY
     Route: 048
     Dates: start: 2014

REACTIONS (9)
  - Fatigue [Recovering/Resolving]
  - Abdominal pain upper [Recovering/Resolving]
  - Dyskinesia [Not Recovered/Not Resolved]
  - Tremor [Not Recovered/Not Resolved]
  - Muscle disorder [Unknown]
  - Muscle spasms [Not Recovered/Not Resolved]
  - Accident [Unknown]
  - Product use issue [Unknown]
  - Pain [Not Recovered/Not Resolved]

NARRATIVE: CASE EVENT DATE: 201606
